FAERS Safety Report 17334528 (Version 1)
Quarter: 2020Q1

REPORT INFORMATION
  Report Type: Spontaneous
  Country: US (occurrence: US)
  Receive Date: 20200128
  Receipt Date: 20200128
  Transmission Date: 20200409
  Serious: No
  Sender: FDA-Public Use
  Company Number: US-PARATEK PHARMACEUTICALS, INC.-2019PTK00123

PATIENT
  Age: 74 Year
  Sex: Female

DRUGS (3)
  1. NUZYRA [Suspect]
     Active Substance: OMADACYCLINE
     Indication: MYCOBACTERIAL INFECTION
     Dosage: ^LOADING DOSE^
     Route: 048
     Dates: start: 20191017, end: 20191018
  2. ^QUITE A BIT OF OTHER MEDS^ (UNSPECIFIED) [Suspect]
     Active Substance: UNSPECIFIED INGREDIENT
  3. NUZYRA [Suspect]
     Active Substance: OMADACYCLINE
     Indication: ABSCESS BACTERIAL
     Dosage: ^MAINTENANCE DOSE^
     Route: 048
     Dates: start: 20191019, end: 20191019

REACTIONS (4)
  - Confusional state [Not Recovered/Not Resolved]
  - Aspartate aminotransferase increased [Not Recovered/Not Resolved]
  - Liver function test increased [Not Recovered/Not Resolved]
  - Mental status changes [Not Recovered/Not Resolved]

NARRATIVE: CASE EVENT DATE: 201910
